FAERS Safety Report 19695144 (Version 2)
Quarter: 2021Q4

REPORT INFORMATION
  Report Type: Spontaneous
  Country: US (occurrence: US)
  Receive Date: 20210812
  Receipt Date: 20211029
  Transmission Date: 20220303
  Serious: No
  Sender: FDA-Public Use
  Company Number: US-PFIZER INC-2020305290

PATIENT
  Age: 60 Year
  Sex: Female

DRUGS (2)
  1. IBRANCE [Suspect]
     Active Substance: PALBOCICLIB
     Indication: Breast cancer stage IV
     Dosage: 125 MG, CYCLIC (125MG, TAKE 1 TAB PO FOR 21 DAYS, THEN 7 DAYS OFF)
     Route: 048
     Dates: start: 20200416
  2. IBRANCE [Suspect]
     Active Substance: PALBOCICLIB
     Indication: Breast cancer female

REACTIONS (2)
  - Diarrhoea [Unknown]
  - Fatigue [Unknown]
